FAERS Safety Report 10881032 (Version 1)
Quarter: 2015Q1

REPORT INFORMATION
  Report Type: Spontaneous
  Country: US (occurrence: None)
  Receive Date: 20150225
  Receipt Date: 20150225
  Transmission Date: 20150721
  Serious: Yes (Hospitalization, Other)
  Sender: FDA-Public Use
  Company Number: None

PATIENT
  Age: 25 Year
  Sex: Male
  Weight: 68.04 kg

DRUGS (1)
  1. CAPTRACIN [Suspect]
     Active Substance: CAPSAICIN\MENTHOL
     Indication: PAIN
     Dosage: 1 PATCH PRN/AS NEEDED TOPICAL
     Route: 061
     Dates: start: 20150220, end: 20150221

REACTIONS (3)
  - Product compounding quality issue [None]
  - Chemical injury [None]
  - Application site burn [None]

NARRATIVE: CASE EVENT DATE: 20150223
